FAERS Safety Report 6228494-X (Version None)
Quarter: 2009Q2

REPORT INFORMATION
  Report Type: 
  Country: None (occurrence: None)
  Receive Date: 20090612
  Receipt Date: 20090604
  Transmission Date: 20091009
  Serious: Yes (Hospitalization, Other)
  Sender: FDA-Public Use
  Company Number: US-ELI_LILLY_AND_COMPANY-US200906001319

PATIENT
  Sex: Female

DRUGS (1)
  1. EVISTA [Suspect]
     Dosage: UNK, UNKNOWN
     Route: 065

REACTIONS (6)
  - FOOT FRACTURE [None]
  - GAIT DISTURBANCE [None]
  - LIMB INJURY [None]
  - PAIN [None]
  - PARAESTHESIA [None]
  - THROMBOSIS [None]
